FAERS Safety Report 18984105 (Version 1)
Quarter: 2021Q1

REPORT INFORMATION
  Report Type: Spontaneous
  Country: US (occurrence: US)
  Receive Date: 20210309
  Receipt Date: 20210309
  Transmission Date: 20210420
  Serious: No
  Sender: FDA-Public Use
  Company Number: US-JNJFOC-20210246756

PATIENT
  Age: 21 Year
  Sex: Female

DRUGS (2)
  1. CHILDRENS ZYRTEC [Suspect]
     Active Substance: CETIRIZINE HYDROCHLORIDE
     Indication: HYPERSENSITIVITY
     Dosage: 5 ML 3X A DAY. 7.5 ML ONCE AT NIGHT TIME 4 TIMES A DAY?START DATE:2019 TO 2020?LAST ADMIN DATE: 24?F
     Route: 048
     Dates: start: 2019
  2. CHILDRENS ZYRTEC [Suspect]
     Active Substance: CETIRIZINE HYDROCHLORIDE
     Dosage: AT NIGHT?LAST ADMIN DATE: 24?FEB?2021
     Route: 048
     Dates: start: 2019

REACTIONS (3)
  - Hypersensitivity [Not Recovered/Not Resolved]
  - Product use in unapproved indication [Unknown]
  - Overdose [Unknown]

NARRATIVE: CASE EVENT DATE: 2019
